FAERS Safety Report 7311146-2 (Version None)
Quarter: 2011Q1

REPORT INFORMATION
  Report Type: 
  Country: None (occurrence: None)
  Receive Date: 20110224
  Receipt Date: 20110210
  Transmission Date: 20110831
  Serious: Yes (Hospitalization)
  Sender: FDA-Public Use
  Company Number: AU-ROCHE-759291

PATIENT
  Sex: Female

DRUGS (3)
  1. ISOTRETINOIN [Suspect]
     Indication: ACNE
     Route: 048
  2. METHOTREXATE [Suspect]
     Indication: PSORIASIS
     Route: 048
  3. HUMIRA [Concomitant]

REACTIONS (5)
  - HIRSUTISM [None]
  - PSORIASIS [None]
  - LIVER FUNCTION TEST ABNORMAL [None]
  - DEPRESSION [None]
  - MENINGITIS [None]
